FAERS Safety Report 21077895 (Version 1)
Quarter: 2022Q3

REPORT INFORMATION
  Report Type: Spontaneous
  Country: CN (occurrence: CN)
  Receive Date: 20220713
  Receipt Date: 20220713
  Transmission Date: 20221026
  Serious: Yes (Other)
  Sender: FDA-Public Use
  Company Number: None

PATIENT
  Age: 46 Year
  Sex: Female
  Weight: 62.5 kg

DRUGS (8)
  1. CYCLOPHOSPHAMIDE [Suspect]
     Active Substance: CYCLOPHOSPHAMIDE
     Indication: Breast cancer female
     Dosage: UNK, QD, FIRST CHEMOTHERAPY,(ENDOXAN CTX) + NS
     Route: 042
  2. CYCLOPHOSPHAMIDE [Suspect]
     Active Substance: CYCLOPHOSPHAMIDE
     Dosage: 900 MG, QD, SECOND CHEMOTHERAPY,CYCLOPHOSPHAMIDE (ENDOXAN CTX) 900 MG + NS 45ML
     Route: 042
     Dates: start: 20220331, end: 20220331
  3. SODIUM CHLORIDE [Suspect]
     Active Substance: SODIUM CHLORIDE
     Indication: Medication dilution
     Dosage: UNK UNK, QD, FIRST CHEMOTHERAPY,(ENDOXAN CTX) + NS
     Route: 042
  4. SODIUM CHLORIDE [Suspect]
     Active Substance: SODIUM CHLORIDE
     Dosage: UNK, QD,FIRST CHEMOTHERAPY,EPIRUBICIN HYDROCHLORIDE (LICHUANG) + NS
     Route: 041
  5. SODIUM CHLORIDE [Suspect]
     Active Substance: SODIUM CHLORIDE
     Dosage: 45 ML,QD,SECOND CHEMOTHERAPY,(ENDOXAN CTX) 900 MG + NS 45ML
     Route: 042
     Dates: start: 20220331, end: 20220331
  6. SODIUM CHLORIDE [Suspect]
     Active Substance: SODIUM CHLORIDE
     Dosage: 100 ML,QD,SECOND CHEMOTHERAPY,EPIRUBICIN HYDROCHLORIDE (LICHUANG) 130 MG + NS 100 ML
     Route: 041
     Dates: start: 20220331, end: 20220331
  7. EPIRUBICIN HYDROCHLORIDE [Suspect]
     Active Substance: EPIRUBICIN HYDROCHLORIDE
     Indication: Breast cancer female
     Dosage: UNK, QD, FIRST CHEMOTHERAPY,EPIRUBICIN HYDROCHLORIDE (LICHUANG) + NS
     Route: 041
  8. EPIRUBICIN HYDROCHLORIDE [Suspect]
     Active Substance: EPIRUBICIN HYDROCHLORIDE
     Dosage: 130 MG, QD, SECOND CHEMOTHERAPY,EPIRUBICIN HYDROCHLORIDE (LICHUANG) 130 MG + NS 100ML
     Route: 041
     Dates: start: 20220331, end: 20220331

REACTIONS (2)
  - White blood cell count decreased [Recovered/Resolved]
  - Agranulocytosis [Recovered/Resolved]

NARRATIVE: CASE EVENT DATE: 20220413
